FAERS Safety Report 20620651 (Version 1)
Quarter: 2022Q1

REPORT INFORMATION
  Report Type: Report from Study
  Country: US (occurrence: None)
  Receive Date: 20220322
  Receipt Date: 20220322
  Transmission Date: 20220424
  Serious: Yes (Other)
  Sender: FDA-Public Use
  Company Number: US-ROCHE-2878507

PATIENT
  Age: 71 Year
  Sex: Female
  Weight: 95.3 kg

DRUGS (19)
  1. RANIBIZUMAB [Suspect]
     Active Substance: RANIBIZUMAB
     Indication: Neovascular age-related macular degeneration
     Dosage: DRUG DOSE FIRST ADMINISTERED IS 100 MG/ML, STUDY DRUG FREQUENCY EVERY 24 WEEKS?DOSE LAST STUDY DRUG
     Route: 050
     Dates: start: 20210205
  2. RANIBIZUMAB [Suspect]
     Active Substance: RANIBIZUMAB
  3. RANIBIZUMAB [Suspect]
     Active Substance: RANIBIZUMAB
  4. RANIBIZUMAB [Suspect]
     Active Substance: RANIBIZUMAB
  5. RANIBIZUMAB [Suspect]
     Active Substance: RANIBIZUMAB
  6. RANIBIZUMAB [Concomitant]
     Active Substance: RANIBIZUMAB
     Dosage: DOSE LAST STUDY DRUG ADMIN PRIOR AE/SAE IS 10 MG/ML
     Route: 050
  7. CELEXA [Concomitant]
     Active Substance: CITALOPRAM HYDROBROMIDE
     Indication: Depression
     Route: 048
     Dates: start: 1980
  8. FLONASE [Concomitant]
     Active Substance: FLUTICASONE PROPIONATE
     Indication: Seasonal allergy
     Route: 045
     Dates: start: 2010
  9. ASTELIN [Concomitant]
     Active Substance: AZELASTINE HYDROCHLORIDE
     Indication: Seasonal allergy
     Route: 055
     Dates: start: 2015
  10. HYDROCHLOROTHIAZIDE [Concomitant]
     Active Substance: HYDROCHLOROTHIAZIDE
     Indication: Hypertension
     Route: 048
     Dates: start: 201906
  11. MOBIC [Concomitant]
     Active Substance: MELOXICAM
     Indication: Spinal osteoarthritis
     Route: 048
     Dates: start: 20190408
  12. CLOBETASOL [Concomitant]
     Active Substance: CLOBETASOL
     Indication: Pruritus
     Dates: start: 20171022
  13. MELOXICAM [Concomitant]
     Active Substance: MELOXICAM
     Indication: Spinal osteoarthritis
     Dates: start: 2019
  14. SULFACETAMIDE SODIUM\SULFUR [Concomitant]
     Active Substance: SULFACETAMIDE SODIUM\SULFUR
     Indication: Rosacea
     Dates: start: 20200507
  15. LOSARTAN [Concomitant]
     Active Substance: LOSARTAN
     Indication: Cardiovascular event prophylaxis
     Dates: start: 20191029
  16. TOBRAMYCIN [Concomitant]
     Active Substance: TOBRAMYCIN
     Dosage: S/P IMPLANT REFILL
     Dates: start: 20210716, end: 20210718
  17. TOBRAMYCIN [Concomitant]
     Active Substance: TOBRAMYCIN
     Dosage: PRE-SURGERY ANTIMICROBIAL
     Dates: start: 20210831, end: 20210927
  18. OCUVITE [Concomitant]
     Active Substance: VITAMINS
     Indication: Nutritional supplementation
     Route: 048
     Dates: start: 20200211
  19. OCUVITE [Concomitant]
     Active Substance: VITAMINS
     Dates: start: 20190628

REACTIONS (2)
  - Conjunctival bleb [Recovered/Resolved]
  - Device failure [Recovered/Resolved]

NARRATIVE: CASE EVENT DATE: 20210716
